FAERS Safety Report 7462225-0 (Version None)
Quarter: 2011Q2

REPORT INFORMATION
  Report Type: 
  Country: None (occurrence: None)
  Receive Date: 20110506
  Receipt Date: 20091120
  Transmission Date: 20111010
  Serious: Yes (Other)
  Sender: FDA-Public Use
  Company Number: US-BAYER-200940916NA

PATIENT
  Age: 65 Year
  Sex: Male

DRUGS (9)
  1. TRASYLOL [Suspect]
     Indication: ECHOCARDIOGRAM
  2. CARDURA [Concomitant]
     Indication: PRODUCT USED FOR UNKNOWN INDICATION
     Dosage: 4 MG, QD
     Route: 048
     Dates: start: 20040101
  3. CELEXA [Concomitant]
     Indication: PRODUCT USED FOR UNKNOWN INDICATION
     Dosage: 20 MG, QD
     Route: 048
     Dates: start: 20040101
  4. CONTRAST MEDIA [Concomitant]
     Indication: NUCLEAR MAGNETIC RESONANCE IMAGING
  5. HUMULIN 70/30 [Concomitant]
     Indication: PRODUCT USED FOR UNKNOWN INDICATION
     Dosage: 20 U IN AM, 8 U IN PM
     Route: 058
     Dates: start: 20040101
  6. CONTRAST MEDIA [Concomitant]
     Indication: CATHETERISATION CARDIAC
     Dosage: 40 ML, UNK
     Dates: start: 20040716
  7. TRASYLOL [Suspect]
     Indication: CORONARY ARTERY BYPASS
     Dosage: UNK
  8. DILTIAZEM [Concomitant]
     Indication: PRODUCT USED FOR UNKNOWN INDICATION
     Dosage: 300 MG, QD
     Route: 048
     Dates: start: 20040101
  9. TRASYLOL [Suspect]
     Indication: CATHETER PLACEMENT

REACTIONS (11)
  - DISABILITY [None]
  - FEAR [None]
  - DEPRESSION [None]
  - RENAL INJURY [None]
  - ANHEDONIA [None]
  - UNEVALUABLE EVENT [None]
  - INJURY [None]
  - RENAL FAILURE [None]
  - PAIN [None]
  - MULTI-ORGAN FAILURE [None]
  - ANXIETY [None]
